FAERS Safety Report 24539509 (Version 1)
Quarter: 2024Q4

REPORT INFORMATION
  Report Type: Spontaneous
  Country: US (occurrence: US)
  Receive Date: 20241023
  Receipt Date: 20241023
  Transmission Date: 20250115
  Serious: No
  Sender: GLAXOSMITHKLINE
  Company Number: US-GSKCCFUS-Case-02127338_AE-117362

PATIENT
  Sex: Female

DRUGS (2)
  1. VENTOLIN HFA [Suspect]
     Active Substance: ALBUTEROL SULFATE
     Indication: Asthma
     Dosage: UNK PUFF(S) UNK AS NEEDED (PRN) (SEVERAL DECADES AGO)
     Route: 055
  2. VENTOLIN HFA [Suspect]
     Active Substance: ALBUTEROL SULFATE
     Indication: Asthma
     Dosage: UNK PUFF(S) UNK AS NEEDED (PRN) (SEVERAL DECADES AGO)
     Route: 055

REACTIONS (2)
  - Wrong technique in device usage process [Unknown]
  - Extra dose administered [Unknown]
